FAERS Safety Report 24563535 (Version 3)
Quarter: 2024Q4

REPORT INFORMATION
  Report Type: Report from Study
  Country: US (occurrence: US)
  Receive Date: 20241030
  Receipt Date: 20241118
  Transmission Date: 20250115
  Serious: Yes (Hospitalization)
  Sender: ROCHE
  Company Number: US-ROCHE-10000118728

PATIENT
  Age: 68 Year
  Sex: Male
  Weight: 118.8 kg

DRUGS (17)
  1. XOLAIR PFS [Suspect]
     Active Substance: OMALIZUMAB
     Indication: Asthma
     Dosage: INJECT 300MG SUBCUTANEOUSLY EVERY 2 WEEK(S)
     Route: 058
     Dates: start: 20180831
  2. XOLAIR PFS [Suspect]
     Active Substance: OMALIZUMAB
  3. amLODIPIne (NORVASC) 10 mg tablet [Concomitant]
     Route: 048
  4. atorvastatin (LIPITOR) 20 mg tablet [Concomitant]
     Route: 048
  5. bromfenac (Prolensa) 0.07% Drops [Concomitant]
     Dosage: 0.07% DROPS
  6. cefdinir (OMNICEF) 300 mg capsule [Concomitant]
     Dates: start: 20241021, end: 20241026
  7. dapagliflozin propanediol (Farxiga) 10 mg Tablet [Concomitant]
  8. gabapentin (NEURONTIN) 300 mg capsule [Concomitant]
     Dates: end: 20241023
  9. hydroCHLOROthiazide (HYDRODIURIL) 25 mg tablet [Concomitant]
     Route: 048
  10. latanoprost (XALATAN) 0.005% ophthalmic solution [Concomitant]
     Route: 047
  11. levothyroxine (Euthyrox) 50 mcg tablet [Concomitant]
     Dosage: PATIENT TAKING DIFFERENTLY: TAKE 4 TABLETS BY MOUTH ONCE DALLY.
     Route: 048
     Dates: start: 20241011, end: 20241023
  12. lisinopril (PRINIVIL, ZESTRIL) 20 mg tablet [Concomitant]
  13. metFORMIN (GLUCOPHAGE) 1000 MG tablet [Concomitant]
     Route: 048
  14. pantoprazole (PROTONIX) 40 mg tablet [Concomitant]
     Route: 048
     Dates: start: 20241021
  15. potassium chloride (KLOR-CON M20) 20 mEq tablet [Concomitant]
  16. prednISONE (DELTASONE) 20 mg tablet [Concomitant]
     Route: 048
     Dates: start: 20241022, end: 20241101
  17. timolol (TIMOPTIC) 0.5% ophthalmic solution [Concomitant]
     Dosage: INSTILL 1 DROP INTO LEFT EYE TWICE DAILY
     Route: 047

REACTIONS (1)
  - Pneumonia [Recovering/Resolving]

NARRATIVE: CASE EVENT DATE: 20241014
